FAERS Safety Report 6067905-X (Version None)
Quarter: 2009Q1

REPORT INFORMATION
  Report Type: 
  Country: None (occurrence: None)
  Receive Date: 20090203
  Receipt Date: 20090119
  Transmission Date: 20090719
  Serious: Yes (Other)
  Sender: FDA-Public Use
  Company Number: DSA_32586_2008

PATIENT
  Sex: Male

DRUGS (21)
  1. CARDIZEM [Suspect]
     Indication: DRUG USE FOR UNKNOWN INDICATION
     Dosage: (DF)
  2. PLAVIX [Suspect]
     Indication: STENT OCCLUSION
     Dosage: (75 MG QD ORAL)
     Route: 048
     Dates: start: 20070802
  3. ASPIRIN [Concomitant]
  4. SLOW-K [Concomitant]
  5. LIPITOR [Concomitant]
  6. PARIET [Concomitant]
  7. SPIRIVA [Concomitant]
  8. BUDESONIDE [Concomitant]
  9. GLUCOSAMINE [Concomitant]
  10. VITAMIN D [Concomitant]
  11. ARISTOCORT [Concomitant]
  12. ELOCON [Concomitant]
  13. NULYTELY [Concomitant]
  14. NITROLINGUAL [Concomitant]
  15. PANAMAX [Concomitant]
  16. REFRESH PLUS [Concomitant]
  17. SIGMACORT [Concomitant]
  18. TEMAZEPAM [Concomitant]
  19. VISCOTEARS [Concomitant]
  20. LASIX [Concomitant]
  21. IRBESARTAN [Concomitant]

REACTIONS (4)
  - DYSPNOEA [None]
  - POST PROCEDURAL PNEUMONIA [None]
  - RECTAL HAEMORRHAGE [None]
  - STENT OCCLUSION [None]
